FAERS Safety Report 9249928 (Version 3)
Quarter: 2013Q3

REPORT INFORMATION
  Report Type: Spontaneous
  Country: DE (occurrence: DE)
  Receive Date: 20130423
  Receipt Date: 20130724
  Transmission Date: 20140515
  Serious: Yes (Other)
  Sender: FDA-Public Use
  Company Number: DE-ROCHE-1217138

PATIENT
  Age: 15 Year
  Sex: Female
  Weight: 43 kg

DRUGS (6)
  1. ROACTEMRA [Suspect]
     Indication: JUVENILE IDIOPATHIC ARTHRITIS
     Route: 042
     Dates: start: 20121105, end: 20121204
  2. ROACTEMRA [Suspect]
     Route: 042
     Dates: start: 20130104, end: 20130503
  3. IBUPROFEN [Concomitant]
     Indication: JUVENILE IDIOPATHIC ARTHRITIS
     Dosage: 3 X 400 MG
     Route: 048
     Dates: start: 20100121, end: 20130129
  4. IBUPROFEN [Concomitant]
     Route: 048
     Dates: start: 20130129
  5. LODOTRA [Concomitant]
     Indication: JUVENILE IDIOPATHIC ARTHRITIS
     Dosage: IN THE EVENING
     Route: 048
     Dates: start: 20120404
  6. OMEPRAZOL [Concomitant]
     Route: 048

REACTIONS (3)
  - Cough [Not Recovered/Not Resolved]
  - Haemoptysis [Not Recovered/Not Resolved]
  - Abdominal pain [Recovered/Resolved]
